FAERS Safety Report 17765728 (Version 4)
Quarter: 2020Q4

REPORT INFORMATION
  Report Type: Spontaneous
  Country: US (occurrence: US)
  Receive Date: 20200511
  Receipt Date: 20201120
  Transmission Date: 20210113
  Serious: Yes (Other)
  Sender: FDA-Public Use
  Company Number: US-SHIRE-US202015822

PATIENT

DRUGS (16)
  1. GATTEX [Suspect]
     Active Substance: TEDUGLUTIDE\WATER
     Dosage: 0.3640 UNIT UNKNOWN, 1X/DAY:QD
     Route: 058
     Dates: start: 20200324
  2. GATTEX [Suspect]
     Active Substance: TEDUGLUTIDE\WATER
     Dosage: 0.364 UNK, QD
     Route: 058
     Dates: start: 20200324
  3. GATTEX [Suspect]
     Active Substance: TEDUGLUTIDE\WATER
     Dosage: 0.182 MILLILITER, QD
     Route: 050
     Dates: start: 20200807, end: 20200922
  4. GATTEX [Suspect]
     Active Substance: TEDUGLUTIDE\WATER
     Dosage: 0.182 MILLILITER, QD
     Route: 050
     Dates: start: 20200807, end: 20200922
  5. GATTEX [Suspect]
     Active Substance: TEDUGLUTIDE\WATER
     Indication: SHORT-BOWEL SYNDROME
     Dosage: 3.61 MILLIGRAM, 1X/DAY:QD
     Route: 058
     Dates: start: 201911, end: 202004
  6. GATTEX [Suspect]
     Active Substance: TEDUGLUTIDE\WATER
     Indication: SHORT-BOWEL SYNDROME
     Dosage: 3.61 MILLIGRAM, 1X/DAY:QD
     Route: 058
     Dates: start: 201911, end: 202004
  7. GATTEX [Suspect]
     Active Substance: TEDUGLUTIDE\WATER
     Dosage: 0.3640 UNIT UNKNOWN, 1X/DAY:QD
     Route: 058
     Dates: start: 20200324
  8. GATTEX [Suspect]
     Active Substance: TEDUGLUTIDE\WATER
     Indication: SHORT-BOWEL SYNDROME
     Dosage: 3.61 MILLIGRAM, 1X/DAY:QD
     Route: 058
     Dates: start: 201911, end: 202004
  9. GATTEX [Suspect]
     Active Substance: TEDUGLUTIDE\WATER
     Dosage: 0.3640 UNIT UNKNOWN, 1X/DAY:QD
     Route: 058
     Dates: start: 20200324
  10. GATTEX [Suspect]
     Active Substance: TEDUGLUTIDE\WATER
     Dosage: 0.364 UNK, QD
     Route: 058
     Dates: start: 20200324
  11. GATTEX [Suspect]
     Active Substance: TEDUGLUTIDE\WATER
     Dosage: 0.182 MILLILITER, QD
     Route: 050
     Dates: start: 20200807, end: 20200922
  12. GATTEX [Suspect]
     Active Substance: TEDUGLUTIDE\WATER
     Indication: SHORT-BOWEL SYNDROME
     Dosage: 3.61 MILLIGRAM, 1X/DAY:QD
     Route: 058
     Dates: start: 201911, end: 202004
  13. GATTEX [Suspect]
     Active Substance: TEDUGLUTIDE\WATER
     Dosage: 0.3640 UNIT UNKNOWN, 1X/DAY:QD
     Route: 058
     Dates: start: 20200324
  14. GATTEX [Suspect]
     Active Substance: TEDUGLUTIDE\WATER
     Dosage: 0.182 MILLILITER, QD
     Route: 050
     Dates: start: 20200807, end: 20200922
  15. GATTEX [Suspect]
     Active Substance: TEDUGLUTIDE\WATER
     Dosage: 0.364 UNK, QD
     Route: 058
     Dates: start: 20200324
  16. GATTEX [Suspect]
     Active Substance: TEDUGLUTIDE\WATER
     Dosage: 0.364 UNK, QD
     Route: 058
     Dates: start: 20200324

REACTIONS (8)
  - Furuncle [Recovering/Resolving]
  - Vomiting [Recovering/Resolving]
  - Incorrect dose administered [Unknown]
  - Abdominal pain [Recovering/Resolving]
  - Gastrointestinal pain [Unknown]
  - Inappropriate schedule of product administration [Not Recovered/Not Resolved]
  - Pyrexia [Recovered/Resolved]
  - Cough [Unknown]
